FAERS Safety Report 22650765 (Version 1)
Quarter: 2023Q2

REPORT INFORMATION
  Report Type: Spontaneous
  Country: CZ (occurrence: CZ)
  Receive Date: 20230628
  Receipt Date: 20230628
  Transmission Date: 20230722
  Serious: Yes (Other)
  Sender: FDA-Public Use
  Company Number: CZ-SUN PHARMACEUTICAL INDUSTRIES LTD-2023RR-396933

PATIENT
  Age: 36 Year
  Sex: Female

DRUGS (2)
  1. CAPECITABINE [Suspect]
     Active Substance: CAPECITABINE
     Indication: Adenocarcinoma
     Dosage: UNK
     Route: 065
     Dates: start: 201909, end: 202111
  2. LAPATINIB [Suspect]
     Active Substance: LAPATINIB
     Indication: Adenocarcinoma
     Dosage: UNK
     Route: 065
     Dates: start: 201909, end: 202111

REACTIONS (1)
  - Disease progression [Unknown]
